FAERS Safety Report 19687807 (Version 1)
Quarter: 2021Q3

REPORT INFORMATION
  Report Type: Spontaneous
  Country: US (occurrence: US)
  Receive Date: 20210811
  Receipt Date: 20210811
  Transmission Date: 20211014
  Serious: No
  Sender: FDA-Public Use
  Company Number: US-PFIZER INC-2021575855

PATIENT
  Age: 68 Year
  Sex: Female
  Weight: 101.6 kg

DRUGS (2)
  1. IBRANCE [Suspect]
     Active Substance: PALBOCICLIB
     Indication: BREAST CANCER METASTATIC
     Dosage: 125 MG, 1X/DAY(125MG SWALLOWED IT ONCE A DAY AT 8PM FOR 21 DAYS)
     Dates: start: 20210403, end: 20210430
  2. IBRANCE [Suspect]
     Active Substance: PALBOCICLIB
     Dosage: 125 MG
     Dates: end: 20210507

REACTIONS (3)
  - White blood cell count decreased [Unknown]
  - Neutrophil count decreased [Unknown]
  - Product dispensing issue [Unknown]

NARRATIVE: CASE EVENT DATE: 20210510
